FAERS Safety Report 24671541 (Version 2)
Quarter: 2024Q4

REPORT INFORMATION
  Report Type: Spontaneous
  Country: JP (occurrence: JP)
  Receive Date: 20241127
  Receipt Date: 20241223
  Transmission Date: 20250115
  Serious: Yes (Hospitalization, Other)
  Sender: REGENERON
  Company Number: JP-REGENERON-20241100960

PATIENT
  Sex: Female

DRUGS (1)
  1. LIBTAYO [Suspect]
     Active Substance: CEMIPLIMAB-RWLC
     Indication: Cervix carcinoma recurrent
     Dosage: UNK

REACTIONS (4)
  - Cholangitis [Recovering/Resolving]
  - Pneumonia [Recovering/Resolving]
  - Nephropathy [Recovering/Resolving]
  - Enterocolitis [Recovering/Resolving]
